FAERS Safety Report 5761002-6 (Version None)
Quarter: 2008Q2

REPORT INFORMATION
  Report Type: 
  Country: None (occurrence: None)
  Receive Date: 20080606
  Receipt Date: 20080526
  Transmission Date: 20081010
  Serious: Yes (Other)
  Sender: FDA-Public Use
  Company Number: CZ-ROCHE-566776

PATIENT
  Age: 61 Year
  Sex: Female

DRUGS (12)
  1. CELLCEPT [Suspect]
     Route: 065
     Dates: start: 20020901
  2. NEORECORMON [Suspect]
     Dosage: PER WEEK. ROUTE: SUBCUTANEOUS?
     Route: 050
     Dates: start: 20071024, end: 20080201
  3. NEORECORMON [Suspect]
     Dosage: PER WEEK. ROUTE: SUBCUTANEOUS, INTRAVENOUS. THERAPY ALTERNATE WITH EPOETIN ALFA.
     Route: 050
     Dates: start: 20020101, end: 20020101
  4. NEORECORMON [Suspect]
     Dosage: PER WEEK. ROUTE: SUBCUTANEOUS?
     Route: 050
     Dates: start: 20050101, end: 20060101
  5. NEORECORMON [Suspect]
     Dosage: PER WEEK. ROUTE: SUBCUTANEOUS?
     Route: 050
     Dates: start: 20070214, end: 20070801
  6. NEORECORMON [Suspect]
     Dosage: 21000IU/WEEK. ROUTE: SUBCUTANEOUS? ONGOING  WITH 1 MONTH'S BREAK (DARBEPOETIN ALFA ADMINISTERED).
     Route: 050
     Dates: start: 20080220
  7. SANDIMMUNE [Suspect]
     Route: 065
     Dates: start: 20020901
  8. PREDNISONE TAB [Suspect]
     Route: 065
     Dates: start: 20020901
  9. ARANESP [Concomitant]
     Dosage: ROUTE: SUBCUTANEOUS?
     Route: 058
     Dates: start: 20070101, end: 20070201
  10. ARANESP [Concomitant]
     Dosage: ONE MONTH IN 2008 (AFTER 20 FEB 2008).
     Route: 058
  11. EPREX [Concomitant]
     Dosage: PER WEEK. ALTERNATE WITH EPOETIN BETA.
     Dates: start: 20020101, end: 20020101
  12. EPREX [Concomitant]
     Dosage: PER WEEK. ROUTE: SUBCUTANEOUS?
     Dates: start: 20070806, end: 20071022

REACTIONS (1)
  - APLASIA PURE RED CELL [None]
